FAERS Safety Report 5394063-7 (Version None)
Quarter: 2007Q3

REPORT INFORMATION
  Report Type: 
  Country: None (occurrence: None)
  Receive Date: 20070723
  Receipt Date: 20070220
  Transmission Date: 20080115
  Serious: No
  Sender: FDA-Public Use
  Company Number: A0640094A

PATIENT
  Age: 69 Year
  Sex: Female

DRUGS (6)
  1. AVANDIA [Suspect]
     Dosage: 2MG PER DAY
     Route: 048
     Dates: start: 20070218
  2. CELEXA [Concomitant]
  3. VALIUM [Concomitant]
  4. MULTI-VITAMIN [Concomitant]
  5. GLYBURIDE [Concomitant]
  6. NYSTATIN [Concomitant]

REACTIONS (5)
  - BLOOD GLUCOSE DECREASED [None]
  - BLOOD GLUCOSE INCREASED [None]
  - FEELING ABNORMAL [None]
  - PALPITATIONS [None]
  - WEIGHT DECREASED [None]
